FAERS Safety Report 15755990 (Version 1)
Quarter: 2018Q4

REPORT INFORMATION
  Report Type: Spontaneous
  Country: CA (occurrence: CA)
  Receive Date: 20181224
  Receipt Date: 20181224
  Transmission Date: 20190205
  Serious: Yes (Other)
  Sender: FDA-Public Use
  Company Number: CA-CELLTRION INC.-2018CA019364

PATIENT

DRUGS (9)
  1. METHOTREXATE SODIUM. [Concomitant]
     Active Substance: METHOTREXATE SODIUM
  2. THALIDOMIDE [Concomitant]
     Active Substance: THALIDOMIDE
  3. ETANERCEPT [Suspect]
     Active Substance: ETANERCEPT
     Indication: STILL^S DISEASE
     Dosage: 10 MG, 2X/WEEK
     Route: 065
  4. ANAKINRA [Concomitant]
     Active Substance: ANAKINRA
  5. TACROLIMUS. [Concomitant]
     Active Substance: TACROLIMUS
  6. INFLIXIMAB PFIZER (UNKNOWN) [Suspect]
     Active Substance: INFLIXIMAB
     Indication: STILL^S DISEASE
     Dosage: 10 MG, MONTHLY
     Route: 065
  7. ETOPOSIDE. [Concomitant]
     Active Substance: ETOPOSIDE
  8. PREDNISONE. [Concomitant]
     Active Substance: PREDNISONE
  9. CYCLOSPORINE. [Concomitant]
     Active Substance: CYCLOSPORINE

REACTIONS (1)
  - Hepatosplenic T-cell lymphoma [Unknown]
